FAERS Safety Report 23820301 (Version 1)
Quarter: 2024Q2

REPORT INFORMATION
  Report Type: Report from Study
  Country: IN (occurrence: IN)
  Receive Date: 20240506
  Receipt Date: 20240506
  Transmission Date: 20240716
  Serious: Yes (Death)
  Sender: FDA-Public Use
  Company Number: IN-CIPLA LTD.-2024IN04150

PATIENT

DRUGS (4)
  1. SPIRONOLACTONE\TORSEMIDE [Suspect]
     Active Substance: SPIRONOLACTONE\TORSEMIDE
     Indication: Product used for unknown indication
     Dosage: DOSE USED-1 (UNSPECIFIED UNITS); UNK
     Route: 048
  2. ATORVASTATIN [Suspect]
     Active Substance: ATORVASTATIN
     Indication: Product used for unknown indication
     Dosage: DOSE USED-1 (UNSPECIFIED UNITS); UNK
     Route: 048
  3. EVAQUIK [Concomitant]
     Indication: Product used for unknown indication
     Dosage: DOSE-1 (UNSPECIFIED UNITS); UNK
     Route: 065
  4. LANOXIN [Concomitant]
     Active Substance: DIGOXIN
     Indication: Product used for unknown indication
     Dosage: DOSE-1/2 (UNSPECIFIED UNITS); UNK
     Route: 065

REACTIONS (1)
  - Blood urea increased [Fatal]

NARRATIVE: CASE EVENT DATE: 20240209
